FAERS Safety Report 8055662-7 (Version None)
Quarter: 2012Q1

REPORT INFORMATION
  Report Type: 
  Country: None (occurrence: None)
  Receive Date: 20120112
  Receipt Date: 20111229
  Transmission Date: 20120608
  Serious: Yes (Disabling, Other)
  Sender: FDA-Public Use
  Company Number: FK201200033

PATIENT
  Age: 72 Year
  Sex: Female
  Weight: 73.0291 kg

DRUGS (19)
  1. GLIPIZIDE [Concomitant]
  2. GENTAMICIN SULFATE [Suspect]
     Indication: SEPSIS
     Dosage: 300 MG, INTRAVENOUS (NOT OTHERWISE SPECIFIED)
     Route: 042
     Dates: start: 20101001, end: 20101021
  3. GENTAMICIN SULFATE [Suspect]
     Dosage: 300 MG, EVERY 48 HOURS, INTRAVENOUS DRIP ; INTRAVENOUS DRIP
     Route: 041
     Dates: start: 20101023, end: 20101028
  4. PROZAC [Concomitant]
  5. SIMVASTATIN [Concomitant]
  6. SYNTHROID [Concomitant]
  7. GENTAMICIN [Suspect]
     Indication: SEPSIS
     Dosage: 20 ML
     Dates: start: 20101012
  8. SODIUM CHLORIDE 0.9% INJECTION [Concomitant]
  9. WARFARIN SODIUM [Concomitant]
  10. PENICILLIN G [Concomitant]
  11. DILTIAZEM HCL [Concomitant]
  12. BENADRYL [Concomitant]
  13. ZYVOX [Concomitant]
  14. SODIUM CHLORIDE 0.9% [Concomitant]
  15. METOPROLOL TARTRATE [Concomitant]
  16. FOLBIC (HEPAGRISEVIT FORTE-N /01079901/) [Concomitant]
  17. DILANTIN [Concomitant]
  18. OMEPRAZOLE [Concomitant]
  19. EPINEPHRINE [Concomitant]

REACTIONS (15)
  - HEAD INJURY [None]
  - FACE INJURY [None]
  - TOXICITY TO VARIOUS AGENTS [None]
  - HAEMATOMA [None]
  - WOUND [None]
  - NERVE INJURY [None]
  - IMPAIRED DRIVING ABILITY [None]
  - BALANCE DISORDER [None]
  - ACTIVITIES OF DAILY LIVING IMPAIRED [None]
  - CONTUSION [None]
  - DIZZINESS [None]
  - VISION BLURRED [None]
  - FALL [None]
  - GAIT DISTURBANCE [None]
  - HYPOAESTHESIA [None]
